FAERS Safety Report 4347513-9 (Version None)
Quarter: 2004Q2

REPORT INFORMATION
  Report Type: 
  Country: None (occurrence: None)
  Receive Date: 20040421
  Receipt Date: 20040302
  Transmission Date: 20050107
  Serious: Yes (Other)
  Sender: FDA-Public Use
  Company Number: 2004005074

PATIENT
  Age: 28 Year
  Sex: Male

DRUGS (1)
  1. RELPAX [Suspect]
     Indication: MIGRAINE
     Dosage: 40 MG (DAILY), ORAL
     Route: 048
     Dates: start: 20040110

REACTIONS (3)
  - DRY SKIN [None]
  - HYPOAESTHESIA [None]
  - NAUSEA [None]
